FAERS Safety Report 4603045-1 (Version None)
Quarter: 2005Q1

REPORT INFORMATION
  Report Type: 
  Country: None (occurrence: None)
  Receive Date: 20050307
  Receipt Date: 20050221
  Transmission Date: 20050727
  Serious: Yes (Hospitalization, Other)
  Sender: FDA-Public Use
  Company Number: 2005034810

PATIENT
  Age: 78 Year
  Sex: Female

DRUGS (5)
  1. COTALOR (ATORVASTATIN) [Suspect]
     Indication: BLOOD CHOLESTEROL INCREASED
     Dosage: 10 MG (10 MG, 1 IN 1 D), ORAL
     Route: 048
  2. GINKGO BILOBA (GINKGO BILOBA) [Concomitant]
  3. RALOXIFENE HCL [Concomitant]
  4. SUPRADYN (FERROUS CARBONATE, MAGNESIUM PHOSPHATE MONOBASIC, MAGNESE SU [Concomitant]
  5. VITAMINS (VITAMINS) [Concomitant]

REACTIONS (5)
  - DIZZINESS [None]
  - EXPOSURE TO TOXIC AGENT [None]
  - FALL [None]
  - INJURY [None]
  - PALPITATIONS [None]
